FAERS Safety Report 7228022-6 (Version None)
Quarter: 2011Q1

REPORT INFORMATION
  Report Type: 
  Country: None (occurrence: None)
  Receive Date: 20110111
  Receipt Date: 20110111
  Transmission Date: 20110831
  Serious: Yes (Hospitalization)
  Sender: FDA-Public Use
  Company Number: None

PATIENT
  Sex: Male
  Weight: 37.331 kg

DRUGS (1)
  1. RISPERIDONE [Suspect]
     Indication: ATTENTION DEFICIT/HYPERACTIVITY DISORDER
     Dosage: 0.5 MG EVERY NIGHT
     Dates: start: 20101117, end: 20101123

REACTIONS (5)
  - HALLUCINATION, AUDITORY [None]
  - FLIGHT OF IDEAS [None]
  - ANXIETY [None]
  - INSOMNIA [None]
  - HALLUCINATION [None]
